FAERS Safety Report 17440400 (Version 2)
Quarter: 2020Q4

REPORT INFORMATION
  Report Type: Spontaneous
  Country: ZA (occurrence: ZA)
  Receive Date: 20200220
  Receipt Date: 20201020
  Transmission Date: 20210113
  Serious: Yes (Hospitalization)
  Sender: FDA-Public Use
  Company Number: ZA-BAYER-2020-028080

PATIENT
  Sex: Female

DRUGS (1)
  1. KYLEENA [Suspect]
     Active Substance: LEVONORGESTREL
     Dosage: 17.5 ?G PER DAY CONTINUOUSLY
     Route: 015
     Dates: start: 2019

REACTIONS (1)
  - Device breakage [None]
